FAERS Safety Report 9002725 (Version 1)
Quarter: 2013Q1

REPORT INFORMATION
  Report Type: Spontaneous
  Country: US (occurrence: US)
  Receive Date: 20130107
  Receipt Date: 20130107
  Transmission Date: 20140127
  Serious: No
  Sender: FDA-Public Use
  Company Number: US-GLAXOSMITHKLINE-A0995838A

PATIENT
  Age: 30 Year
  Sex: Female
  Weight: 95.34 kg

DRUGS (2)
  1. BENLYSTA [Suspect]
     Indication: SYSTEMIC LUPUS ERYTHEMATOSUS
     Route: 042
     Dates: start: 20111001
  2. BENLYSTA [Suspect]
     Dates: start: 20111001, end: 20111126

REACTIONS (1)
  - Migraine [Recovered/Resolved]
